FAERS Safety Report 26037811 (Version 1)
Quarter: 2025Q4

REPORT INFORMATION
  Report Type: Spontaneous
  Country: US (occurrence: US)
  Receive Date: 20251112
  Receipt Date: 20251112
  Transmission Date: 20260117
  Serious: Yes (Life-Threatening, Hospitalization, Other)
  Sender: BRACCO
  Company Number: US-BRACCO-2025US00043

PATIENT
  Age: 76 Year
  Sex: Male

DRUGS (35)
  1. LUMASON [Suspect]
     Active Substance: SULFUR HEXAFLUORIDE
     Indication: Echocardiogram
     Dosage: 4 ML OF 10 CC DILUTED LUMASON
     Route: 042
     Dates: start: 20250103, end: 20250103
  2. LUMASON [Suspect]
     Active Substance: SULFUR HEXAFLUORIDE
     Indication: Echocardiogram
     Dosage: 4 ML OF 10 CC DILUTED LUMASON
     Route: 042
     Dates: start: 20250103, end: 20250103
  3. LUMASON [Suspect]
     Active Substance: SULFUR HEXAFLUORIDE
     Indication: Echocardiogram
     Dosage: 4 ML OF 10 CC DILUTED LUMASON
     Route: 042
     Dates: start: 20250103, end: 20250103
  4. ANTIVERT [Concomitant]
     Active Substance: MECLIZINE HYDROCHLORIDE
     Dosage: 25 MG TABLET
  5. CLARITIN [Concomitant]
     Active Substance: LORATADINE
     Dosage: 10 MG TABLET
  6. COLACE [Concomitant]
     Active Substance: DOCUSATE SODIUM
     Dosage: 100 MG CAPSULE
  7. CRESTOR [Concomitant]
     Active Substance: ROSUVASTATIN CALCIUM
     Dosage: 40 MG TABLET
  8. CYANOCOBALAMIN [Concomitant]
     Active Substance: CYANOCOBALAMIN
     Dosage: 1000 MCG TABLET
  9. DITROPAN XL [Concomitant]
     Active Substance: OXYBUTYNIN CHLORIDE
     Dosage: 5 MG ER TABLET
  10. ELIQUIS [Concomitant]
     Active Substance: APIXABAN
     Dosage: 2.5 MG TABLET
  11. FENTANYL [Concomitant]
     Active Substance: FENTANYL
     Dosage: 50 MCG, SINGLE
     Route: 042
     Dates: start: 20250103, end: 20250103
  12. FERROUS SULFATE [Concomitant]
     Active Substance: FERROUS SULFATE
     Dosage: 325 MG (65 MG IRON) DR
  13. FLOMAX [Concomitant]
     Active Substance: TAMSULOSIN HYDROCHLORIDE
     Dosage: 04 MG CAPSULE
  14. FLONASE [Concomitant]
     Active Substance: FLUTICASONE PROPIONATE
     Dosage: 50 MCG /ACUATION NASAL SRPAY
  15. FUROSEMIDE [Concomitant]
     Active Substance: FUROSEMIDE
     Dosage: 20 MG TABLET
  16. JARDIANCE [Concomitant]
     Active Substance: EMPAGLIFLOZIN
     Dosage: 25 MG TABLET
  17. LANTUS [Concomitant]
     Active Substance: INSULIN GLARGINE
     Dosage: 100 UNITS/ML
  18. LOPRESSOR [Concomitant]
     Active Substance: METOPROLOL TARTRATE
     Dosage: 25 MG TABLET
  19. MAGNESIUM OXIDE [Concomitant]
     Active Substance: MAGNESIUM OXIDE
     Dosage: 400 MG TABLET
  20. METFORMIN [Concomitant]
     Active Substance: METFORMIN HYDROCHLORIDE
     Dosage: 500 MG TABLET
  21. NEURONTIN [Concomitant]
     Active Substance: GABAPENTIN
     Dosage: 100 MG CAPSULE
  22. NITROSTAT [Concomitant]
     Active Substance: NITROGLYCERIN
     Dosage: 0.4 MG  TABLET
     Route: 060
  23. OXYGEN [Concomitant]
     Active Substance: OXYGEN
     Dosage: PER DELIVERY DEVICE
  24. PAXIL [Concomitant]
     Active Substance: PAROXETINE HYDROCHLORIDE
     Dosage: 30 MG TABLET
  25. PLAVIX [Concomitant]
     Active Substance: CLOPIDOGREL BISULFATE
     Dosage: 75 MG TABLET
  26. PROSCAR [Concomitant]
     Active Substance: FINASTERIDE
     Dosage: 5 MG TABLET
  27. PROTONIX [Concomitant]
     Active Substance: PANTOPRAZOLE SODIUM
     Dosage: 40 MG DR TABLET
  28. SENOKOT [Concomitant]
     Active Substance: SENNOSIDES
     Dosage: 8.6 MG TABLET
  29. SINGULAIR [Concomitant]
     Active Substance: MONTELUKAST SODIUM
     Dosage: 10 MG TABLET
  30. SYNTHROID [Concomitant]
     Active Substance: LEVOTHYROXINE SODIUM
     Dosage: 88 MCG TABLET
  31. TRIGLIDE [Concomitant]
     Active Substance: FENOFIBRATE
     Dosage: 160 MG TABLET
  32. VENTOLIN HFA [Concomitant]
     Active Substance: ALBUTEROL SULFATE
     Dosage: 90 MCG /ACUTATION UNHALER
  33. VERSED [Concomitant]
     Active Substance: MIDAZOLAM HYDROCHLORIDE
     Dosage: 2 MG
     Route: 042
     Dates: start: 20250103, end: 20250103
  34. VITAMIN D3 [Concomitant]
     Active Substance: CHOLECALCIFEROL
     Dosage: 2000 UNIT TABLET
  35. ZANAFLEX [Concomitant]
     Active Substance: TIZANIDINE HYDROCHLORIDE
     Dosage: 2 MG TABLET

REACTIONS (4)
  - Cardiac arrest [Not Recovered/Not Resolved]
  - Bradycardia [Not Recovered/Not Resolved]
  - Erythema [Not Recovered/Not Resolved]
  - Hyperhidrosis [Not Recovered/Not Resolved]

NARRATIVE: CASE EVENT DATE: 20250103
